FAERS Safety Report 14838153 (Version 43)
Quarter: 2022Q2

REPORT INFORMATION
  Report Type: Other
  Country: CA (occurrence: None)
  Receive Date: 20180502
  Receipt Date: 20220521
  Transmission Date: 20220720
  Serious: Yes (Other)
  Sender: FDA-Public Use
  Company Number: CA-ROCHE-1696490

PATIENT
  Age: 31 Year
  Sex: Female
  Weight: 178 kg

DRUGS (10)
  1. ACTEMRA [Suspect]
     Active Substance: TOCILIZUMAB
     Indication: Rheumatoid arthritis
     Route: 042
     Dates: start: 20151216, end: 20180619
  2. ACTEMRA [Suspect]
     Active Substance: TOCILIZUMAB
     Route: 042
     Dates: start: 20170815
  3. ACTEMRA [Suspect]
     Active Substance: TOCILIZUMAB
     Route: 042
     Dates: start: 20171031
  4. ACTEMRA [Suspect]
     Active Substance: TOCILIZUMAB
     Dosage: INFUSION NO. 29
     Route: 042
     Dates: start: 20180423
  5. ACTEMRA [Suspect]
     Active Substance: TOCILIZUMAB
     Route: 042
     Dates: start: 20190606
  6. CELEBREX [Suspect]
     Active Substance: CELECOXIB
     Indication: Product used for unknown indication
     Route: 065
  7. FOLIC ACID [Concomitant]
     Active Substance: FOLIC ACID
     Indication: Product used for unknown indication
  8. METHOTREXATE [Concomitant]
     Active Substance: METHOTREXATE
     Indication: Product used for unknown indication
     Route: 058
  9. ENBREL [Concomitant]
     Active Substance: ETANERCEPT
     Indication: Product used for unknown indication
  10. SYNTHROID [Concomitant]
     Active Substance: LEVOTHYROXINE SODIUM
     Indication: Product used for unknown indication

REACTIONS (38)
  - Tooth infection [Unknown]
  - Pneumonia [Not Recovered/Not Resolved]
  - Blood thyroid stimulating hormone increased [Unknown]
  - Arthropathy [Unknown]
  - Bronchitis [Not Recovered/Not Resolved]
  - Weight increased [Unknown]
  - Body temperature decreased [Unknown]
  - Oxygen saturation decreased [Unknown]
  - Rash [Not Recovered/Not Resolved]
  - Ulcer [Recovered/Resolved]
  - Blood pressure increased [Unknown]
  - Influenza [Recovered/Resolved]
  - Oxygen saturation decreased [Unknown]
  - Feeling abnormal [Unknown]
  - Weight decreased [Recovering/Resolving]
  - Blood pressure increased [Unknown]
  - Fatigue [Unknown]
  - Influenza like illness [Unknown]
  - Diarrhoea [Unknown]
  - Blood pressure diastolic increased [Unknown]
  - Nasopharyngitis [Not Recovered/Not Resolved]
  - Influenza [Unknown]
  - Productive cough [Not Recovered/Not Resolved]
  - Gastroenteritis viral [Recovered/Resolved]
  - Lower respiratory tract infection [Recovering/Resolving]
  - Tooth disorder [Recovered/Resolved]
  - Nasopharyngitis [Unknown]
  - Musculoskeletal disorder [Not Recovered/Not Resolved]
  - Heart rate decreased [Unknown]
  - Blood pressure systolic increased [Unknown]
  - Herpes zoster [Recovered/Resolved]
  - Gait inability [Recovering/Resolving]
  - Body temperature decreased [Unknown]
  - Heart rate increased [Unknown]
  - Blood pressure fluctuation [Unknown]
  - Stress [Unknown]
  - Blood pressure diastolic increased [Unknown]
  - Blood pressure diastolic abnormal [Unknown]

NARRATIVE: CASE EVENT DATE: 20151231
